FAERS Safety Report 8853232 (Version 1)
Quarter: 2012Q4

REPORT INFORMATION
  Report Type: 
  Country: BR (occurrence: BR)
  Receive Date: 20121023
  Receipt Date: 20121023
  Transmission Date: 20130627
  Serious: Yes (Other)
  Sender: FDA-Public Use
  Company Number: BR-AMGEN-BRASP2012017760

PATIENT
  Age: 55 Year
  Sex: Female
  Weight: 60 kg

DRUGS (6)
  1. ENBREL [Suspect]
     Indication: ANKYLOSING SPONDYLITIS
     Dosage: 50 mg, 1x/week
     Route: 058
     Dates: start: 201111, end: 201206
  2. ENBREL [Suspect]
     Dosage: UNK
     Dates: start: 201012, end: 20110317
  3. MELOXICAM [Concomitant]
     Dosage: 15 mg, 1x/day
  4. DOLAMIN FLEX [Concomitant]
     Indication: PAIN
     Dosage: UNK
  5. DORFLEX [Concomitant]
     Indication: PAIN
     Dosage: UNK
  6. IBUPROFEN [Concomitant]
     Dosage: UNK

REACTIONS (3)
  - Benign breast neoplasm [Unknown]
  - Haemangioma [Unknown]
  - Injection site pain [Unknown]
